FAERS Safety Report 5143472-X (Version None)
Quarter: 2006Q4

REPORT INFORMATION
  Report Type: 
  Country: None (occurrence: None)
  Receive Date: 20061101
  Receipt Date: 20061101
  Transmission Date: 20070319
  Serious: No
  Sender: FDA-Public Use
  Company Number: None

PATIENT
  Age: 44 Year
  Sex: Female
  Weight: 54.8852 kg

DRUGS (2)
  1. LAMICTAL [Suspect]
     Indication: EPILEPSY
     Dosage: 100 MG BID PO
     Route: 048
     Dates: start: 20061001, end: 20061025
  2. RIBOFLAVIN TAB [Concomitant]

REACTIONS (2)
  - CHEILITIS [None]
  - STOMATITIS [None]
